FAERS Safety Report 5428094-5 (Version None)
Quarter: 2007Q3

REPORT INFORMATION
  Report Type: 
  Country: None (occurrence: None)
  Receive Date: 20070731
  Receipt Date: 20070425
  Transmission Date: 20080115
  Serious: No
  Sender: FDA-Public Use
  Company Number: US200704005932

PATIENT
  Age: 56 Year
  Sex: Female
  Weight: 102.5 kg

DRUGS (7)
  1. BYETTA (EXENATIDE) PEN, DISPOSABLE [Suspect]
     Indication: TYPE 2 DIABETES MELLITUS
     Dosage: 5 UG, SUBCUTANEOUS ; 10 UG 2/D SUBCUTANEOUS; 5 UG 2/D SUBCUTANEOUS
     Route: 058
     Dates: start: 20060801, end: 20070201
  2. BYETTA (EXENATIDE) PEN, DISPOSABLE [Suspect]
     Indication: TYPE 2 DIABETES MELLITUS
     Dosage: 5 UG, SUBCUTANEOUS ; 10 UG 2/D SUBCUTANEOUS; 5 UG 2/D SUBCUTANEOUS
     Route: 058
     Dates: start: 20070201, end: 20070423
  3. BYETTA (EXENATIDE) PEN, DISPOSABLE [Suspect]
     Indication: TYPE 2 DIABETES MELLITUS
     Dosage: 5 UG, SUBCUTANEOUS ; 10 UG 2/D SUBCUTANEOUS; 5 UG 2/D SUBCUTANEOUS
     Route: 058
     Dates: start: 20070424
  4. EXENATIDE 5MCG PEN, DISPOSABLE DEVICE (EXENATIDE PEN (5MCG)) PEN, DISP [Concomitant]
  5. AVANDIA [Concomitant]
  6. AMARYL [Concomitant]
  7. LISINOPRIL [Concomitant]

REACTIONS (3)
  - HYPERTENSION [None]
  - MUSCULOSKELETAL DISCOMFORT [None]
  - PAIN IN EXTREMITY [None]
